FAERS Safety Report 5760148-6 (Version None)
Quarter: 2008Q2

REPORT INFORMATION
  Report Type: 
  Country: None (occurrence: None)
  Receive Date: 20080605
  Receipt Date: 20080508
  Transmission Date: 20081010
  Serious: No
  Sender: FDA-Public Use
  Company Number: US-BOEHRINGER INGELHEIM GMBH, GERMANY-2008-BP-05910BP

PATIENT
  Age: 65 Year
  Sex: Female

DRUGS (19)
  1. MIRAPEX [Suspect]
     Indication: RESTLESS LEGS SYNDROME
     Route: 048
     Dates: start: 20080409, end: 20080511
  2. MIRAPEX [Suspect]
     Route: 048
     Dates: start: 20080414
  3. PROZAC [Concomitant]
     Indication: OBSESSIVE-COMPULSIVE DISORDER
  4. LISINOPRIL [Concomitant]
     Indication: HYPERTENSION
  5. ATENOLOL [Concomitant]
     Indication: HYPERTENSION
  6. FOSAMAX [Concomitant]
     Indication: OSTEOPOROSIS
  7. ASPIRIN [Concomitant]
     Indication: CARDIAC DISORDER
  8. LEVOTHYROXINE SODIUM [Concomitant]
     Indication: THYROID DISORDER
  9. FLUOXETINE HCL [Concomitant]
  10. PHENAZOPYRIDINE HCL TAB [Concomitant]
     Indication: URINARY TRACT INFECTION
  11. ENABLEX [Concomitant]
     Indication: BLADDER DISORDER
  12. VYTORIN [Concomitant]
     Indication: BLOOD CHOLESTEROL ABNORMAL
  13. MULTI-VITAMIN [Concomitant]
  14. CALCIUM [Concomitant]
  15. PSYLLIUM SEED HUSK [Concomitant]
  16. FLAX SEED OIL [Concomitant]
  17. CHROMIUM PICOLONATE [Concomitant]
  18. PEPCID [Concomitant]
  19. FLU SHOT [Concomitant]

REACTIONS (10)
  - ABNORMAL BEHAVIOUR [None]
  - ABNORMAL DREAMS [None]
  - DRY MOUTH [None]
  - FEELING ABNORMAL [None]
  - GAIT DISTURBANCE [None]
  - HEADACHE [None]
  - MUSCLE SPASMS [None]
  - OEDEMA PERIPHERAL [None]
  - PAIN IN EXTREMITY [None]
  - SOMNOLENCE [None]
